FAERS Safety Report 10098308 (Version 2)
Quarter: 2014Q2

REPORT INFORMATION
  Report Type: Spontaneous
  Country: US (occurrence: US)
  Receive Date: 20140423
  Receipt Date: 20140608
  Transmission Date: 20141212
  Serious: No
  Sender: FDA-Public Use
  Company Number: US-009507513-1404USA010625

PATIENT
  Age: 21 Year
  Sex: Female
  Weight: 60.31 kg

DRUGS (10)
  1. NEXPLANON [Suspect]
     Indication: CONTRACEPTION
     Dosage: 68 MG, 1 ROD
     Route: 059
     Dates: start: 201308
  2. ADVAIR [Concomitant]
     Dosage: UNK
  3. ALBUTEROL SULFATE [Concomitant]
     Dosage: UNK
  4. ITRACONAZOLE [Concomitant]
     Dosage: UNK
  5. EPIDUO [Concomitant]
     Dosage: UNK
  6. VITAMIN B (UNSPECIFIED) [Concomitant]
     Dosage: UNK
  7. CALCIUM (UNSPECIFIED) [Concomitant]
     Dosage: UNK
  8. TRICHOSANTHES [Concomitant]
     Dosage: UNK
  9. STINGING NETTLE [Concomitant]
     Dosage: UNK
  10. BROMELAINS (+) QUERCETIN [Concomitant]
     Dosage: UNK

REACTIONS (3)
  - Vaginal haemorrhage [Not Recovered/Not Resolved]
  - Device kink [Not Recovered/Not Resolved]
  - Device breakage [Not Recovered/Not Resolved]
